FAERS Safety Report 9697452 (Version 2)
Quarter: 2013Q4

REPORT INFORMATION
  Report Type: Report from Study
  Country: JP (occurrence: JP)
  Receive Date: 20131120
  Receipt Date: 20131210
  Transmission Date: 20140711
  Serious: Yes (Hospitalization)
  Sender: FDA-Public Use
  Company Number: PHHY2013JP132047

PATIENT
  Age: 85 Year
  Sex: Female
  Weight: 37 kg

DRUGS (3)
  1. RIVASTIGMIN [Suspect]
     Indication: DEMENTIA ALZHEIMER^S TYPE
     Dosage: 4.5 MG, DAILY
     Route: 062
     Dates: start: 20130517, end: 20130616
  2. EXFORGE [Concomitant]
  3. TANATRIL [Concomitant]

REACTIONS (1)
  - Femur fracture [Recovered/Resolved with Sequelae]
